FAERS Safety Report 4742917-4 (Version None)
Quarter: 2005Q3

REPORT INFORMATION
  Report Type: 
  Country: None (occurrence: None)
  Receive Date: 20050810
  Receipt Date: 20050810
  Transmission Date: 20060218
  Serious: Yes (Life-Threatening)
  Sender: FDA-Public Use
  Company Number: None

PATIENT
  Sex: Female

DRUGS (2)
  1. GEMCITABINE [Suspect]
     Indication: PANCREATIC CARCINOMA METASTATIC
     Dosage: 900 MG/M2   INTRAVENOU
     Route: 042
     Dates: start: 20040922, end: 20050721
  2. IRINOTECAN [Suspect]
     Indication: PANCREATIC CARCINOMA METASTATIC
     Dosage: 75  MG/M2  INTRAVENOU
     Route: 042
     Dates: start: 20040922, end: 20050721

REACTIONS (1)
  - ANAEMIA [None]
